FAERS Safety Report 7995237-9 (Version None)
Quarter: 2011Q4

REPORT INFORMATION
  Report Type: 
  Country: None (occurrence: None)
  Receive Date: 20111220
  Receipt Date: 20111220
  Transmission Date: 20120403
  Serious: No
  Sender: FDA-Public Use
  Company Number: None

PATIENT
  Age: 48 Year
  Sex: Female
  Weight: 95.254 kg

DRUGS (1)
  1. AMLODIPINE [Suspect]
     Indication: LIVER DISORDER
     Dosage: 1
     Route: 048
     Dates: start: 20111110, end: 20111129

REACTIONS (1)
  - HEPATIC ENZYME INCREASED [None]
